FAERS Safety Report 19863294 (Version 2)
Quarter: 2021Q4

REPORT INFORMATION
  Report Type: Other
  Country: US (occurrence: US)
  Receive Date: 20210921
  Receipt Date: 20211221
  Transmission Date: 20220303
  Serious: No
  Sender: FDA-Public Use
  Company Number: US-ACORDA-ACO_170094_2021

PATIENT
  Age: 69 Year
  Sex: Female

DRUGS (6)
  1. INBRIJA [Suspect]
     Active Substance: LEVODOPA
     Indication: Parkinson^s disease
     Dosage: 2 DOSAGE FORM, PRN (DO NOT EXCEED 5 DOSES IN 1 DAY)
     Dates: start: 20210205
  2. INBRIJA [Suspect]
     Active Substance: LEVODOPA
     Indication: On and off phenomenon
  3. CARBIDOPA\LEVODOPA [Concomitant]
     Active Substance: CARBIDOPA\LEVODOPA
     Indication: Product used for unknown indication
     Dosage: 25-100MG, 1.5 PILLS AT 7, 11 AND 7 PM; 1 PILL AT 3 PM
     Route: 065
  4. CARBIDOPA [Concomitant]
     Active Substance: CARBIDOPA
     Indication: Product used for unknown indication
     Dosage: 25 MILLIGRAM
     Route: 065
  5. LEVOTHYROXINE [Concomitant]
     Active Substance: LEVOTHYROXINE
     Indication: Product used for unknown indication
     Dosage: UNK
     Route: 065
  6. PRAMIPEXOLE [Concomitant]
     Active Substance: PRAMIPEXOLE
     Indication: Product used for unknown indication
     Dosage: 0.25 MG; 1 PILL 4 TIMES A DAY AND 2 PILLS AT 11 PM
     Route: 065

REACTIONS (3)
  - Choking [Not Recovered/Not Resolved]
  - Product residue present [Unknown]
  - Cough [Not Recovered/Not Resolved]

NARRATIVE: CASE EVENT DATE: 20210320
